FAERS Safety Report 5024578-2 (Version None)
Quarter: 2006Q2

REPORT INFORMATION
  Report Type: 
  Country: None (occurrence: None)
  Receive Date: 20060426
  Receipt Date: 20060210
  Transmission Date: 20061013
  Serious: Yes (Other)
  Sender: FDA-Public Use
  Company Number: 2005172986

PATIENT
  Age: 59 Year
  Sex: Male

DRUGS (5)
  1. LYRICA [Suspect]
     Indication: DIABETIC NEUROPATHY
     Dosage: 150 MG (50 MG,3 IN 1 D)
     Dates: start: 20050101
  2. LYRICA [Suspect]
     Indication: RADICULOPATHY
     Dosage: 150 MG (50 MG,3 IN 1 D)
     Dates: start: 20050101
  3. TOPROL-XL [Concomitant]
  4. WARFARIN (WARFARIN) [Concomitant]
  5. LANOXIN [Concomitant]

REACTIONS (1)
  - HERPES ZOSTER [None]
